FAERS Safety Report 5173816-4 (Version None)
Quarter: 2006Q4

REPORT INFORMATION
  Report Type: 
  Country: None (occurrence: None)
  Receive Date: 20061214
  Receipt Date: 20061108
  Transmission Date: 20070319
  Serious: Yes (Life-Threatening, Other)
  Sender: FDA-Public Use
  Company Number: SPV1-2006-01281

PATIENT
  Age: 30 Year
  Sex: Female

DRUGS (4)
  1. ZANTAC [Suspect]
     Indication: PREMEDICATION
     Dosage: 50MG PER DAY
     Route: 042
     Dates: start: 20060515, end: 20060515
  2. MAXOLON [Suspect]
     Indication: DRUG USE FOR UNKNOWN INDICATION
     Dosage: 10MG UNKNOWN
     Route: 042
     Dates: start: 20060501
  3. RANITIDINE [Suspect]
     Indication: DRUG USE FOR UNKNOWN INDICATION
     Route: 065
  4. METOCLOPRAMIDE [Concomitant]
     Indication: PREMEDICATION
     Dates: start: 20060515, end: 20060515

REACTIONS (6)
  - ANAPHYLACTIC REACTION [None]
  - DRUG EXPOSURE DURING PREGNANCY [None]
  - DYSPNOEA [None]
  - FACE OEDEMA [None]
  - LIP SWELLING [None]
  - OEDEMA MUCOSAL [None]
